FAERS Safety Report 12321159 (Version 1)
Quarter: 2016Q2

REPORT INFORMATION
  Report Type: Spontaneous
  Country: US (occurrence: US)
  Receive Date: 20160502
  Receipt Date: 20160502
  Transmission Date: 20160815
  Serious: No
  Sender: FDA-Public Use
  Company Number: US-ASTRAZENECA-2016SE36223

PATIENT
  Sex: Male
  Weight: 154.2 kg

DRUGS (2)
  1. PLAVIX [Concomitant]
     Active Substance: CLOPIDOGREL BISULFATE
     Indication: STENT PLACEMENT
  2. BRILINTA [Suspect]
     Active Substance: TICAGRELOR
     Indication: STENT PLACEMENT
     Route: 048
     Dates: start: 20160310, end: 201603

REACTIONS (3)
  - Dyspnoea [Not Recovered/Not Resolved]
  - Slow speech [Not Recovered/Not Resolved]
  - Mobility decreased [Not Recovered/Not Resolved]
